FAERS Safety Report 5394164-3 (Version None)
Quarter: 2007Q3

REPORT INFORMATION
  Report Type: 
  Country: None (occurrence: None)
  Receive Date: 20070723
  Receipt Date: 20070710
  Transmission Date: 20080115
  Serious: Yes (Hospitalization)
  Sender: FDA-Public Use
  Company Number: JP-ASTRAZENECA-2007SE04084

PATIENT
  Age: 27129 Day
  Sex: Female
  Weight: 53 kg

DRUGS (14)
  1. CANDESARTAN CILEXETIL [Suspect]
     Indication: CARDIAC FAILURE CHRONIC
     Route: 048
     Dates: start: 20070428, end: 20070507
  2. CANDESARTAN CILEXETIL [Suspect]
     Route: 048
     Dates: start: 20070508
  3. LASIX [Suspect]
     Indication: CARDIAC FAILURE CHRONIC
     Route: 048
  4. ALDACTONE [Suspect]
     Indication: CARDIAC FAILURE CHRONIC
     Route: 048
  5. HALCION [Concomitant]
     Indication: INSOMNIA
     Route: 048
  6. DIGOSIN [Concomitant]
     Indication: CARDIAC FAILURE CHRONIC
     Route: 048
  7. WARFARIN SODIUM [Concomitant]
     Indication: THROMBOSIS PROPHYLAXIS
     Dosage: 4.5 MG (MORNING 2 MG AND EVENING 2.5 MG)
     Route: 048
  8. PERSANTIN [Concomitant]
     Indication: THROMBOSIS PROPHYLAXIS
     Route: 048
  9. MUCOSTA [Concomitant]
     Indication: GASTRITIS
     Route: 048
  10. KALGUT [Concomitant]
     Indication: CARDIAC FAILURE CHRONIC
     Route: 048
  11. SENNOSIDE [Concomitant]
     Indication: CONSTIPATION
     Route: 048
  12. MERISLON [Concomitant]
     Indication: DIZZINESS
     Route: 048
  13. CEPHADOL [Concomitant]
     Indication: DIZZINESS
     Route: 048
  14. APHTASOLON [Concomitant]
     Indication: STOMATITIS
     Route: 048

REACTIONS (1)
  - DIZZINESS [None]
